FAERS Safety Report 6943467-7 (Version None)
Quarter: 2010Q3

REPORT INFORMATION
  Report Type: 
  Country: None (occurrence: None)
  Receive Date: 20100823
  Receipt Date: 20100806
  Transmission Date: 20110219
  Serious: Yes (Hospitalization)
  Sender: FDA-Public Use
  Company Number: DSA_43748_2010

PATIENT
  Age: 82 Year
  Sex: Female

DRUGS (3)
  1. ENALAPRIL MALEATE [Suspect]
     Indication: HYPERTENSION
     Dosage: 20 MG BID ORAL, (DF ORAL)
     Route: 048
  2. DICLOFENAC (DICLOFENAC) [Suspect]
     Indication: BACK PAIN
     Dosage: 50 MG BID
  3. METFORMIN [Concomitant]

REACTIONS (17)
  - ACIDOSIS [None]
  - BACK PAIN [None]
  - BLOOD CREATININE INCREASED [None]
  - BLOOD GLUCOSE INCREASED [None]
  - BLOOD SODIUM INCREASED [None]
  - BLOOD UREA INCREASED [None]
  - DIARRHOEA [None]
  - DRUG INTERACTION [None]
  - DYSSTASIA [None]
  - ELECTROLYTE IMBALANCE [None]
  - FALL [None]
  - HYPERKALAEMIA [None]
  - METABOLIC ACIDOSIS [None]
  - MOBILITY DECREASED [None]
  - MUSCULAR WEAKNESS [None]
  - RENAL FAILURE [None]
  - VOMITING [None]
